FAERS Safety Report 4518391-X (Version None)
Quarter: 2004Q4

REPORT INFORMATION
  Report Type: 
  Country: None (occurrence: None)
  Receive Date: 20041202
  Receipt Date: 20041130
  Transmission Date: 20050328
  Serious: Yes (Hospitalization)
  Sender: FDA-Public Use
  Company Number: FRWYE690706APR04

PATIENT
  Age: 48 Year
  Sex: Male

DRUGS (3)
  1. RAPAMUNE [Suspect]
     Indication: PROPHYLAXIS AGAINST TRANSPLANT REJECTION
     Dosage: 3 MG, 1X PER 1 DAY, ORAL
     Route: 048
     Dates: start: 20030701
  2. CELLCEPT [Suspect]
     Indication: PROPHYLAXIS AGAINST TRANSPLANT REJECTION
     Dosage: 1500 MG, 1 X PER 1 DAY, ORAL
     Route: 048
     Dates: start: 20030702
  3. PREDNISONE [Suspect]
     Indication: PROPHYLAXIS AGAINST TRANSPLANT REJECTION
     Dosage: 8 MG, 1X PER 1 DAY, ORAL
     Route: 048
     Dates: start: 20030729

REACTIONS (3)
  - HELICOBACTER GASTRITIS [None]
  - OESOPHAGITIS ULCERATIVE [None]
  - REFLUX OESOPHAGITIS [None]
